FAERS Safety Report 21172268 (Version 1)
Quarter: 2022Q3

REPORT INFORMATION
  Report Type: Spontaneous
  Country: US (occurrence: US)
  Receive Date: 20220804
  Receipt Date: 20220804
  Transmission Date: 20221027
  Serious: Yes (Death, Other)
  Sender: FDA-Public Use
  Company Number: US-OTSUKA-2022_039272

PATIENT
  Age: 76 Year
  Sex: Male

DRUGS (3)
  1. DECITABINE [Suspect]
     Active Substance: DECITABINE
     Indication: Neoplasm malignant
     Dosage: 20 MG/M2 (FOR 5 DAYS)
     Route: 065
  2. VENETOCLAX [Suspect]
     Active Substance: VENETOCLAX
     Indication: Neoplasm malignant
     Dosage: 100 MG X 14 X 3 CYCLES DAYS X 3 CYCLES
     Route: 065
  3. TAGRAXOFUSP [Suspect]
     Active Substance: TAGRAXOFUSP
     Indication: Product used for unknown indication
     Dosage: UNK
     Route: 065

REACTIONS (4)
  - Pneumonia aspiration [Fatal]
  - Gastrointestinal haemorrhage [Unknown]
  - Product use issue [Unknown]
  - Product use in unapproved indication [Unknown]
